FAERS Safety Report 5449274-9 (Version None)
Quarter: 2007Q3

REPORT INFORMATION
  Report Type: 
  Country: None (occurrence: None)
  Receive Date: 20070907
  Receipt Date: 20070828
  Transmission Date: 20080115
  Serious: Yes (Other)
  Sender: FDA-Public Use
  Company Number: 2006SP004026

PATIENT
  Age: 68 Year
  Sex: Male

DRUGS (12)
  1. POSACONAZOLE [Suspect]
     Indication: ANTIFUNGAL PROPHYLAXIS
     Dosage: 200 MG;TID ; 200 MG;QID
     Dates: end: 20060915
  2. POSACONAZOLE [Suspect]
     Indication: ANTIFUNGAL PROPHYLAXIS
     Dosage: 200 MG;TID ; 200 MG;QID
     Dates: start: 20060801
  3. ARA-C (PREV.) [Concomitant]
  4. MITOXANTRON (PREV.) [Concomitant]
  5. DAUNORUBICIN (CON.) [Concomitant]
  6. THIOGUANINE (CON.) [Concomitant]
  7. CYTARABINE (CON.) [Concomitant]
  8. PIPERACILLIN (CON.) [Concomitant]
  9. TAZOBACTAM (CON.) [Concomitant]
  10. VANCOMYCIN (CON.) [Concomitant]
  11. MEROPENEM (CON.) [Concomitant]
  12. AMOPHOTERICIN B (PREV.) [Concomitant]

REACTIONS (6)
  - BLOOD CULTURE POSITIVE [None]
  - DRUG INEFFECTIVE [None]
  - FUNGAL SEPSIS [None]
  - KLEBSIELLA INFECTION [None]
  - PATHOGEN RESISTANCE [None]
  - TRICHOSPORON INFECTION [None]
